FAERS Safety Report 8932450 (Version 1)
Quarter: 2012Q4

REPORT INFORMATION
  Report Type: Report from Study
  Country: CA (occurrence: CA)
  Receive Date: 20121128
  Receipt Date: 20121128
  Transmission Date: 20130627
  Serious: Yes (Other)
  Sender: FDA-Public Use
  Company Number: CA-JNJFOC-20121110663

PATIENT
  Sex: Female
  Weight: 95 kg

DRUGS (19)
  1. REMICADE [Suspect]
     Indication: SERONEGATIVE ARTHRITIS
     Route: 042
     Dates: start: 200810
  2. METHOTREXATE [Concomitant]
     Route: 065
  3. LYRICA [Concomitant]
     Route: 065
  4. SYNTHROID [Concomitant]
     Route: 065
  5. CALCIUM [Concomitant]
     Route: 065
  6. VITAMIN D [Concomitant]
     Route: 065
  7. FOLIC ACID [Concomitant]
     Route: 065
  8. FENTANYL [Concomitant]
     Route: 065
  9. VENLAFAXINE [Concomitant]
     Route: 065
  10. TRAZODONE [Concomitant]
     Route: 065
  11. ASA [Concomitant]
     Route: 065
  12. ESTROGEN [Concomitant]
     Route: 065
  13. PROGESTERONE [Concomitant]
     Route: 065
  14. ZOPICLONE [Concomitant]
     Route: 065
  15. LANSOPRAZOLE [Concomitant]
     Route: 065
  16. LIPITOR [Concomitant]
     Route: 065
  17. TRAMACET [Concomitant]
     Route: 065
  18. TRIIODOTHYRONINE [Concomitant]
     Route: 065
  19. EZETROL [Concomitant]
     Route: 065

REACTIONS (1)
  - Coeliac disease [Recovering/Resolving]
